FAERS Safety Report 19950373 (Version 1)
Quarter: 2021Q4

REPORT INFORMATION
  Report Type: Report from Study
  Country: US (occurrence: US)
  Receive Date: 20211013
  Receipt Date: 20211013
  Transmission Date: 20220303
  Serious: Yes (Hospitalization, Other)
  Sender: FDA-Public Use
  Company Number: US-MYLANLABS-2021M1071280

PATIENT
  Age: 36 Year
  Sex: Female
  Weight: 76 kg

DRUGS (1)
  1. AMBRISENTAN [Suspect]
     Active Substance: AMBRISENTAN
     Indication: Product used for unknown indication
     Dosage: 10 MILLIGRAM
     Route: 065

REACTIONS (2)
  - Abortion induced [Recovered/Resolved]
  - Maternal exposure during pregnancy [Recovered/Resolved]

NARRATIVE: CASE EVENT DATE: 20210528
